FAERS Safety Report 16927689 (Version 2)
Quarter: 2020Q1

REPORT INFORMATION
  Report Type: Spontaneous
  Country: US (occurrence: US)
  Receive Date: 20191016
  Receipt Date: 20200115
  Transmission Date: 20200409
  Serious: Yes (Hospitalization, Other)
  Sender: FDA-Public Use
  Company Number: US-009507513-1910USA009265

PATIENT
  Age: 52 Year
  Sex: Female

DRUGS (1)
  1. SIVEXTRO [Suspect]
     Active Substance: TEDIZOLID PHOSPHATE
     Indication: CELLULITIS
     Route: 048

REACTIONS (4)
  - Drug ineffective [Unknown]
  - Cellulitis staphylococcal [Recovered/Resolved]
  - Osteomyelitis [Recovered/Resolved]
  - Capnocytophaga infection [Recovered/Resolved]
